FAERS Safety Report 10167724 (Version 2)
Quarter: 2014Q2

REPORT INFORMATION
  Report Type: Spontaneous
  Country: CN (occurrence: CN)
  Receive Date: 20140512
  Receipt Date: 20140512
  Transmission Date: 20141212
  Serious: Yes (Other)
  Sender: FDA-Public Use
  Company Number: PHHY2013CN021922

PATIENT
  Age: 64 Year
  Sex: Male

DRUGS (4)
  1. LOTENSIN [Suspect]
     Indication: HYPERTENSION
     Dosage: 2 DF, UNK (1 TABLET IN THE NIGHT)
     Route: 048
     Dates: start: 20130301
  2. LOTENSIN [Suspect]
     Dosage: 1 DF, UNK (1 TABLET IN THE MORNING AND 1 TABLET IN THE NIGHT)
     Route: 048
  3. LOTENSIN [Suspect]
     Dosage: 1 DF, UNK (1 TABLET IN THE NIGHT)
     Route: 048
     Dates: end: 20130304
  4. PLENDIL [Concomitant]
     Indication: HYPERTENSION
     Dosage: 1 DF, EVERY MORNING
     Route: 048

REACTIONS (4)
  - Hypertension [Recovered/Resolved]
  - Therapeutic response decreased [Unknown]
  - Cough [Recovered/Resolved]
  - Drug ineffective [Unknown]
